FAERS Safety Report 11114704 (Version 1)
Quarter: 2015Q2

REPORT INFORMATION
  Report Type: Spontaneous
  Country: GB (occurrence: None)
  Receive Date: 20150513
  Receipt Date: 20150513
  Transmission Date: 20150821
  Serious: Yes (Life-Threatening)
  Sender: FDA-Public Use
  Company Number: FK201502151

PATIENT
  Age: 38 Year
  Sex: Female
  Weight: 59.6 kg

DRUGS (10)
  1. ATRACURIUM (ATRACURIUM) [Suspect]
     Active Substance: ATRACURIUM
     Indication: SURGERY
     Route: 042
     Dates: start: 20140109
  2. MIDAZOLAM [Suspect]
     Active Substance: MIDAZOLAM\MIDAZOLAM HYDROCHLORIDE
     Indication: SURGERY
  3. MORPHINE (MORPHINE) (MORPHINE) [Suspect]
     Active Substance: MORPHINE
     Indication: ANAESTHESIA
     Route: 042
  4. MORPHINE (MORPHINE) (MORPHINE) [Suspect]
     Active Substance: MORPHINE
     Indication: SURGERY
     Route: 042
  5. CEFUROXIME (MANUFACTURER UNKNOWN) (CEFUROXIME) (CEFUROXIME) [Suspect]
     Active Substance: CEFUROXIME
     Indication: SURGERY
     Route: 042
     Dates: start: 20140109, end: 20140109
  6. PATENT BLUE [Suspect]
     Active Substance: PATENT BLUE V
     Indication: SURGERY
     Route: 042
  7. PATENT BLUE [Suspect]
     Active Substance: PATENT BLUE V
     Indication: ANAESTHESIA
     Route: 042
  8. CEFUROXIME (MANUFACTURER UNKNOWN) (CEFUROXIME) (CEFUROXIME) [Suspect]
     Active Substance: CEFUROXIME
     Indication: ANTIBIOTIC PROPHYLAXIS
     Route: 042
     Dates: start: 20140109, end: 20140109
  9. ATRACURIUM (ATRACURIUM) [Suspect]
     Active Substance: ATRACURIUM
     Indication: GENERAL ANAESTHESIA
     Route: 042
     Dates: start: 20140109
  10. MIDAZOLAM [Suspect]
     Active Substance: MIDAZOLAM\MIDAZOLAM HYDROCHLORIDE
     Indication: ANAESTHESIA

REACTIONS (2)
  - Anaphylactic reaction [None]
  - Hypotension [None]

NARRATIVE: CASE EVENT DATE: 20140109
